FAERS Safety Report 5166985-3 (Version None)
Quarter: 2006Q4

REPORT INFORMATION
  Report Type: 
  Country: None (occurrence: None)
  Receive Date: 20061201
  Receipt Date: 20061201
  Transmission Date: 20070319
  Serious: No
  Sender: FDA-Public Use
  Company Number: None

PATIENT
  Sex: Female
  Weight: 97.5234 kg

DRUGS (1)
  1. CISPLATIN [Suspect]
     Indication: CERVIX CARCINOMA STAGE II
     Dosage: WEEKLY IV
     Route: 042
     Dates: start: 20031223, end: 20040318

REACTIONS (5)
  - ARTHROPATHY [None]
  - HEADACHE [None]
  - MEMORY IMPAIRMENT [None]
  - THINKING ABNORMAL [None]
  - VISUAL DISTURBANCE [None]
